FAERS Safety Report 12393462 (Version 9)
Quarter: 2016Q3

REPORT INFORMATION
  Report Type: Spontaneous
  Country: US (occurrence: US)
  Receive Date: 20160523
  Receipt Date: 20160923
  Transmission Date: 20161109
  Serious: Yes (Other)
  Sender: FDA-Public Use
  Company Number: US-GLAXOSMITHKLINE-US2016070960

PATIENT
  Age: 52 Year
  Sex: Female

DRUGS (20)
  1. LIPITOR [Concomitant]
     Active Substance: ATORVASTATIN CALCIUM
  2. TYLENOL PM [Concomitant]
     Active Substance: ACETAMINOPHEN\DIPHENHYDRAMINE
  3. MAGNESIUM [Concomitant]
     Active Substance: MAGNESIUM
  4. CEFTIN [Suspect]
     Active Substance: CEFUROXIME AXETIL
     Indication: PRODUCT USED FOR UNKNOWN INDICATION
     Dosage: 500 MG, BID
     Route: 048
     Dates: start: 20160519, end: 201605
  5. PULMICORT TURBUHALER [Suspect]
     Active Substance: BUDESONIDE
     Indication: PRODUCT USED FOR UNKNOWN INDICATION
     Dosage: UNK
  6. SEREVENT DISKUS [Suspect]
     Active Substance: SALMETEROL XINAFOATE
     Indication: ASTHMA
     Dosage: 1 PUFF(S), BID
     Route: 055
  7. VICODIN [Concomitant]
     Active Substance: ACETAMINOPHEN\HYDROCODONE BITARTRATE
  8. ATIVAN [Concomitant]
     Active Substance: LORAZEPAM
  9. CEFTIN [Suspect]
     Active Substance: CEFUROXIME AXETIL
     Indication: PRODUCT USED FOR UNKNOWN INDICATION
     Dosage: 10 ML, BID
     Route: 048
     Dates: start: 20160517, end: 20160518
  10. MYSOLINE [Concomitant]
     Active Substance: PRIMIDONE
  11. PEPCID AC [Concomitant]
     Active Substance: FAMOTIDINE
  12. DUONEB [Concomitant]
     Active Substance: ALBUTEROL SULFATE\IPRATROPIUM BROMIDE
  13. VENTOLIN HFA [Suspect]
     Active Substance: ALBUTEROL SULFATE
     Indication: DYSPNOEA
     Dosage: 2 PUFF(S), PRN
     Route: 055
  14. LEVOXYL [Concomitant]
     Active Substance: LEVOTHYROXINE SODIUM
  15. VITAMIN B12 [Concomitant]
     Active Substance: CYANOCOBALAMIN
  16. PROTONIX [Concomitant]
     Active Substance: PANTOPRAZOLE SODIUM
  17. KLONOPIN [Concomitant]
     Active Substance: CLONAZEPAM
  18. ASPIRIN (BABY) [Concomitant]
     Active Substance: ASPIRIN
  19. ZETIA [Concomitant]
     Active Substance: EZETIMIBE
  20. VITAMIN D3 [Concomitant]
     Active Substance: CHOLECALCIFEROL

REACTIONS (29)
  - Systemic lupus erythematosus [Unknown]
  - Diverticulitis [Unknown]
  - Condition aggravated [Not Recovered/Not Resolved]
  - Gastric disorder [Not Recovered/Not Resolved]
  - Lung disorder [Unknown]
  - Nausea [Unknown]
  - Product quality issue [Unknown]
  - Coma [Unknown]
  - Gastrointestinal disorder [Not Recovered/Not Resolved]
  - Mucous stools [Unknown]
  - Pneumonia [Unknown]
  - Abdominal distension [Unknown]
  - Drug dose omission [Unknown]
  - Reactive gastropathy [Not Recovered/Not Resolved]
  - Diarrhoea [Unknown]
  - Abdominal pain upper [Unknown]
  - Respiratory failure [Unknown]
  - Melaena [Unknown]
  - Fatigue [Recovered/Resolved]
  - Adverse event [Unknown]
  - Malaise [Unknown]
  - Abdominal pain [Unknown]
  - Colonoscopy [Unknown]
  - Impaired gastric emptying [Not Recovered/Not Resolved]
  - Haematochezia [Unknown]
  - Multiple allergies [Unknown]
  - Muscle spasms [Unknown]
  - Product preparation error [Unknown]
  - Medication error [Unknown]

NARRATIVE: CASE EVENT DATE: 2003
